FAERS Safety Report 12656518 (Version 2)
Quarter: 2016Q3

REPORT INFORMATION
  Report Type: Spontaneous
  Country: BR (occurrence: BR)
  Receive Date: 20160816
  Receipt Date: 20160825
  Transmission Date: 20161109
  Serious: Yes (Other)
  Sender: FDA-Public Use
  Company Number: PHHY2016BR111559

PATIENT
  Sex: Male
  Weight: 83 kg

DRUGS (3)
  1. TEGRETOL [Suspect]
     Active Substance: CARBAMAZEPINE
     Dosage: 2 DF, QD (STRENGTH: 400 MG)
     Route: 048
  2. TEGRETOL [Suspect]
     Active Substance: CARBAMAZEPINE
     Indication: EPILEPSY
     Dosage: 2 DF, QD (STRENGTH: 400 MG)
     Route: 048
  3. TEGRETOL [Suspect]
     Active Substance: CARBAMAZEPINE
     Dosage: 2 DF, (STRENGTH: 200 MG)
     Route: 048

REACTIONS (3)
  - Blood cholesterol increased [Recovering/Resolving]
  - Expired product administered [Unknown]
  - Dyskinesia [Recovered/Resolved]
